FAERS Safety Report 4523489-6 (Version None)
Quarter: 2004Q4

REPORT INFORMATION
  Report Type: 
  Country: None (occurrence: None)
  Receive Date: 20041210
  Receipt Date: 20041202
  Transmission Date: 20050328
  Serious: Yes (Death)
  Sender: FDA-Public Use
  Company Number: GB-MERCK-0412GBR00036

PATIENT
  Age: 93 Year
  Sex: Female

DRUGS (14)
  1. VIOXX [Suspect]
     Indication: GOUT
     Route: 048
     Dates: start: 20040322, end: 20040326
  2. DIGOXIN [Concomitant]
     Indication: ATRIAL FIBRILLATION
     Route: 048
     Dates: start: 20031201, end: 20040328
  3. SPIRONOLACTONE [Concomitant]
     Indication: LEFT VENTRICULAR FAILURE
     Route: 048
     Dates: start: 20031201
  4. ENALAPRIL MALEATE [Concomitant]
     Indication: LEFT VENTRICULAR FAILURE
     Route: 048
     Dates: start: 20031201, end: 20040301
  5. CALCIUM CARBONATE AND CHOLECALCIFEROL [Concomitant]
     Indication: BONE DEVELOPMENT ABNORMAL
     Route: 048
     Dates: start: 20040115, end: 20040328
  6. WARFARIN [Concomitant]
     Indication: ATRIAL FIBRILLATION
     Route: 048
     Dates: start: 20031201, end: 20040328
  7. HYPROMELLOSE [Concomitant]
     Indication: DRY EYE
     Route: 047
     Dates: start: 20031201, end: 20040328
  8. FOSAMAX [Concomitant]
     Indication: BONE DEVELOPMENT ABNORMAL
     Route: 048
     Dates: start: 20031201, end: 20040328
  9. LORATADINE [Concomitant]
     Route: 048
     Dates: start: 20040110, end: 20040127
  10. ACETAMINOPHEN AND CODEINE PHOSPHATE [Concomitant]
     Indication: PAIN
     Route: 048
     Dates: start: 20031230, end: 20040326
  11. FUROSEMIDE [Concomitant]
     Indication: CARDIAC FAILURE CONGESTIVE
     Route: 048
     Dates: end: 20040321
  12. ALBUTEROL SULFATE AND IPRATROPIUM BROMIDE [Concomitant]
     Indication: DYSPNOEA
     Route: 055
     Dates: start: 20040115, end: 20040328
  13. ALBUTEROL SULFATE AND IPRATROPIUM BROMIDE [Concomitant]
     Indication: WHEEZING
     Route: 055
     Dates: start: 20040115, end: 20040328
  14. ALLOPURINOL [Concomitant]
     Indication: GOUT
     Route: 048
     Dates: start: 20040206, end: 20040322

REACTIONS (1)
  - RENAL FAILURE ACUTE [None]
